FAERS Safety Report 9384229 (Version 1)
Quarter: 2013Q3

REPORT INFORMATION
  Report Type: Spontaneous
  Country: FI (occurrence: FI)
  Receive Date: 20130705
  Receipt Date: 20130705
  Transmission Date: 20140515
  Serious: Yes (Hospitalization)
  Sender: FDA-Public Use
  Company Number: FI-ROCHE-1244970

PATIENT
  Sex: Female

DRUGS (5)
  1. MABTHERA [Suspect]
     Indication: RHEUMATOID ARTHRITIS
     Route: 042
     Dates: start: 20101108, end: 20120827
  2. AZAMUN [Concomitant]
     Indication: RHEUMATOID ARTHRITIS
     Route: 048
     Dates: start: 200001
  3. PREDNISOLON [Concomitant]
     Indication: RHEUMATOID ARTHRITIS
     Route: 048
     Dates: start: 1985
  4. PARACETAMOL [Concomitant]
     Indication: PAIN
     Route: 048
  5. LOSATRIX COMP [Concomitant]
     Indication: BLOOD PRESSURE
     Route: 048

REACTIONS (2)
  - Adenocarcinoma of colon [Unknown]
  - Metastases to peritoneum [Unknown]
